FAERS Safety Report 16167101 (Version 1)
Quarter: 2019Q2

REPORT INFORMATION
  Report Type: Spontaneous
  Country: DE (occurrence: DE)
  Receive Date: 20190408
  Receipt Date: 20190408
  Transmission Date: 20190711
  Serious: Yes (Hospitalization)
  Sender: FDA-Public Use
  Company Number: DE-ROCHE-2298347

PATIENT
  Age: 51 Year
  Sex: Female
  Weight: 95 kg

DRUGS (1)
  1. MABTHERA [Suspect]
     Active Substance: RITUXIMAB
     Indication: LYMPHOMA
     Route: 042
     Dates: start: 201304, end: 201509

REACTIONS (3)
  - Secondary immunodeficiency [Not Recovered/Not Resolved]
  - Herpes zoster [Not Recovered/Not Resolved]
  - Pneumococcal sepsis [Not Recovered/Not Resolved]

NARRATIVE: CASE EVENT DATE: 20181007
